FAERS Safety Report 19276712 (Version 2)
Quarter: 2021Q2

REPORT INFORMATION
  Report Type: Spontaneous
  Country: CN (occurrence: CN)
  Receive Date: 20210519
  Receipt Date: 20210526
  Transmission Date: 20210717
  Serious: Yes (Life-Threatening, Hospitalization, Other)
  Sender: FDA-Public Use
  Company Number: CN-ANIPHARMA-2021-AU-000144

PATIENT
  Age: 76 Year
  Sex: Female

DRUGS (1)
  1. CANDESARTAN CILEXETIL. [Suspect]
     Active Substance: CANDESARTAN CILEXETIL
     Indication: ESSENTIAL HYPERTENSION
     Dosage: UNK / 12 MG DAIL
     Route: 048

REACTIONS (2)
  - Lung adenocarcinoma [Recovered/Resolved]
  - Hypertensive crisis [Unknown]
